FAERS Safety Report 17516818 (Version 1)
Quarter: 2020Q1

REPORT INFORMATION
  Report Type: Spontaneous
  Country: US (occurrence: US)
  Receive Date: 20200309
  Receipt Date: 20200309
  Transmission Date: 20200409
  Serious: Yes (Hospitalization)
  Sender: FDA-Public Use
  Company Number: US-SUNOVION-2020SUN000757

PATIENT
  Sex: Female

DRUGS (3)
  1. LATUDA [Suspect]
     Active Substance: LURASIDONE HYDROCHLORIDE
     Dosage: 60 MG
     Route: 048
     Dates: start: 20200227
  2. LATUDA [Suspect]
     Active Substance: LURASIDONE HYDROCHLORIDE
     Dosage: 80 MG
     Route: 048
  3. LATUDA [Suspect]
     Active Substance: LURASIDONE HYDROCHLORIDE
     Indication: MAJOR DEPRESSION
     Dosage: 60 MG
     Route: 048

REACTIONS (8)
  - Glycosylated haemoglobin increased [Unknown]
  - Blood pressure increased [Unknown]
  - Depression [Unknown]
  - Aggression [Unknown]
  - Blood cholesterol increased [Unknown]
  - Off label use [Unknown]
  - Impulsive behaviour [Unknown]
  - Apathy [Not Recovered/Not Resolved]
